FAERS Safety Report 16177739 (Version 1)
Quarter: 2019Q2

REPORT INFORMATION
  Report Type: Spontaneous
  Country: GB (occurrence: GB)
  Receive Date: 20190410
  Receipt Date: 20190410
  Transmission Date: 20190711
  Serious: Yes (Hospitalization, Other)
  Sender: FDA-Public Use
  Company Number: GB-AUROBINDO-AUR-APL-2019-018371

PATIENT

DRUGS (3)
  1. ZAPONEX [Suspect]
     Active Substance: CLOZAPINE
     Dosage: UNK, (46 CLOZAPINE TABLETS; MIXTURE OF 100 MG AND 25 MG TABLETS))
     Route: 048
     Dates: start: 20190308, end: 20190308
  2. ZAPONEX [Suspect]
     Active Substance: CLOZAPINE
     Indication: PRODUCT USED FOR UNKNOWN INDICATION
     Dosage: 300 MILLIGRAM, DAILY, TONIGHT
     Route: 048
     Dates: start: 20101020, end: 20190308
  3. PARACETAMOL [Suspect]
     Active Substance: ACETAMINOPHEN
     Indication: PRODUCT USED FOR UNKNOWN INDICATION
     Dosage: UNK
     Route: 065
     Dates: start: 20190308, end: 20190308

REACTIONS (6)
  - Tachycardia [Recovered/Resolved]
  - Vomiting [Recovered/Resolved]
  - Dyspnoea [Recovered/Resolved]
  - Confusional state [Recovered/Resolved]
  - Intentional overdose [Recovered/Resolved]
  - Sedation [Recovered/Resolved]

NARRATIVE: CASE EVENT DATE: 20190308
